FAERS Safety Report 20712177 (Version 1)
Quarter: 2022Q2

REPORT INFORMATION
  Report Type: Spontaneous
  Country: FR (occurrence: FR)
  Receive Date: 20220414
  Receipt Date: 20220414
  Transmission Date: 20220721
  Serious: Yes (Death, Other)
  Sender: FDA-Public Use
  Company Number: FR-GRUNENTHAL-2022-102896

PATIENT
  Age: 11 Month
  Sex: Male

DRUGS (2)
  1. TRAMADOL HYDROCHLORIDE [Suspect]
     Active Substance: TRAMADOL HYDROCHLORIDE
     Indication: Product used for unknown indication
     Dosage: UNK
     Route: 048
  2. TRAMADOL HYDROCHLORIDE [Suspect]
     Active Substance: TRAMADOL HYDROCHLORIDE
     Dosage: UNK
     Route: 064

REACTIONS (6)
  - Cyanosis [Fatal]
  - Respiratory distress [Fatal]
  - Toxicity to various agents [Fatal]
  - Accidental overdose [Unknown]
  - Product administered to patient of inappropriate age [Unknown]
  - Foetal exposure during pregnancy [Unknown]
